FAERS Safety Report 24132945 (Version 1)
Quarter: 2024Q3

REPORT INFORMATION
  Report Type: Spontaneous
  Country: US (occurrence: US)
  Receive Date: 20240724
  Receipt Date: 20240724
  Transmission Date: 20241016
  Serious: No
  Sender: Unknown Manufacturer
  Company Number: US-ACELLA PHARMACEUTICALS, LLC-2024ALO00171

PATIENT
  Sex: Female

DRUGS (7)
  1. DIVIGEL [Suspect]
     Active Substance: ESTRADIOL
     Indication: Hot flush
     Dosage: UNSPECIFIED AMOUNT OF GEL PACKET), 1X/DAY
     Route: 061
     Dates: start: 2014
  2. DIVIGEL [Suspect]
     Active Substance: ESTRADIOL
     Indication: Menopausal symptoms
     Dosage: UNSPECIFIED AMOUNT OF GEL PACKET), 1X/DAY
     Route: 061
  3. PROGESTERONE [Concomitant]
     Active Substance: PROGESTERONE
  4. LEVOTHYROXINE [Concomitant]
     Active Substance: LEVOTHYROXINE\LEVOTHYROXINE SODIUM
  5. ATORVASTATIN [Concomitant]
     Active Substance: ATORVASTATIN
  6. PANTOPRAZOLE [Concomitant]
     Active Substance: PANTOPRAZOLE
  7. TOPAMAX [Concomitant]
     Active Substance: TOPIRAMATE

REACTIONS (4)
  - Hot flush [Recovering/Resolving]
  - Middle insomnia [Unknown]
  - Wrong dose [Recovered/Resolved]
  - Product packaging quantity issue [Unknown]
